FAERS Safety Report 8514676-0 (Version None)
Quarter: 2012Q3

REPORT INFORMATION
  Report Type: 
  Country: None (occurrence: None)
  Receive Date: 20120717
  Receipt Date: 20120419
  Transmission Date: 20120928
  Serious: Yes (Other)
  Sender: FDA-Public Use
  Company Number: DE-ASTRAZENECA-2012SE48780

PATIENT
  Age: 1 Month

DRUGS (1)
  1. ZOLMITRIPTAN [Suspect]
     Route: 045

REACTIONS (3)
  - OVERDOSE [None]
  - DYSPNOEA [None]
  - RESPIRATORY ACIDOSIS [None]
